FAERS Safety Report 8498854-5 (Version None)
Quarter: 2012Q3

REPORT INFORMATION
  Report Type: 
  Country: None (occurrence: None)
  Receive Date: 20120710
  Receipt Date: 20120702
  Transmission Date: 20120928
  Serious: No
  Sender: FDA-Public Use
  Company Number: US-BIOGENIDEC-2010BI015551

PATIENT
  Sex: Female

DRUGS (1)
  1. TYSABRI [Suspect]
     Indication: MULTIPLE SCLEROSIS
     Route: 042
     Dates: start: 20100423

REACTIONS (6)
  - WHITE BLOOD CELL COUNT INCREASED [None]
  - ILL-DEFINED DISORDER [None]
  - POLLAKIURIA [None]
  - BLADDER DISORDER [None]
  - BLOOD TEST ABNORMAL [None]
  - MICTURITION URGENCY [None]
